FAERS Safety Report 8996147 (Version 1)
Quarter: 2013Q1

REPORT INFORMATION
  Report Type: Other
  Country: DE (occurrence: DE)
  Receive Date: 20130103
  Receipt Date: 20130103
  Transmission Date: 20140127
  Serious: Yes (Death)
  Sender: FDA-Public Use
  Company Number: DE-NICOBRDEVP-2012-22970

PATIENT
  Age: 79 Year
  Sex: Male

DRUGS (5)
  1. METFORMIN HYDROCHLORIDE (UNKNOWN) [Suspect]
     Indication: DIABETES MELLITUS
     Dosage: 2000 MG, DAILY
     Route: 048
  2. PHENPROCOUMON [Concomitant]
     Indication: ATRIAL FIBRILLATION
     Dosage: UNK
     Route: 048
  3. RAMIPRIL [Concomitant]
     Indication: HYPERTENSION
     Dosage: 1 X 5 MG/DAILY
     Route: 048
  4. ALLOPURINOL [Concomitant]
     Indication: HYPERURICAEMIA
     Dosage: 1 X 100 MG/DAILY
     Route: 048
  5. VALPROAT [Concomitant]
     Indication: EPILEPSY
     Dosage: 2 X 300 MG/DAILY
     Route: 048

REACTIONS (2)
  - Lactic acidosis [Fatal]
  - Renal failure acute [Fatal]
